FAERS Safety Report 24601197 (Version 3)
Quarter: 2024Q4

REPORT INFORMATION
  Report Type: Report from Study
  Country: JP (occurrence: JP)
  Receive Date: 20241110
  Receipt Date: 20241224
  Transmission Date: 20250115
  Serious: Yes (Hospitalization, Other)
  Sender: SANOFI AVENTIS
  Company Number: JP-SAKK-2024SA322109AA

PATIENT
  Age: 19 Year
  Sex: Female
  Weight: 66.1 kg

DRUGS (30)
  1. CAPLACIZUMAB [Suspect]
     Active Substance: CAPLACIZUMAB
     Indication: Thrombotic thrombocytopenic purpura
     Dosage: 10 MG, 1X
     Route: 042
     Dates: start: 20231206, end: 20231206
  2. CAPLACIZUMAB [Suspect]
     Active Substance: CAPLACIZUMAB
     Indication: Thrombotic thrombocytopenic purpura
     Dosage: 10 MG, 1X
     Route: 042
     Dates: start: 20231206, end: 20231206
  3. CAPLACIZUMAB [Suspect]
     Active Substance: CAPLACIZUMAB
     Indication: Thrombotic thrombocytopenic purpura
     Dosage: 10 MG, 1X
     Route: 042
     Dates: start: 20231206, end: 20231206
  4. CAPLACIZUMAB [Suspect]
     Active Substance: CAPLACIZUMAB
     Indication: Thrombotic thrombocytopenic purpura
     Dosage: 10 MG, 1X
     Route: 042
     Dates: start: 20231206, end: 20231206
  5. CAPLACIZUMAB [Suspect]
     Active Substance: CAPLACIZUMAB
     Dosage: 10 MG, 1X
     Route: 058
     Dates: start: 20231206, end: 20231206
  6. CAPLACIZUMAB [Suspect]
     Active Substance: CAPLACIZUMAB
     Dosage: 10 MG, 1X
     Route: 058
     Dates: start: 20231206, end: 20231206
  7. CAPLACIZUMAB [Suspect]
     Active Substance: CAPLACIZUMAB
     Dosage: 10 MG, 1X
     Route: 058
     Dates: start: 20231206, end: 20231206
  8. CAPLACIZUMAB [Suspect]
     Active Substance: CAPLACIZUMAB
     Dosage: 10 MG, 1X
     Route: 058
     Dates: start: 20231206, end: 20231206
  9. CAPLACIZUMAB [Suspect]
     Active Substance: CAPLACIZUMAB
     Dosage: 10 MG, QD
     Route: 058
     Dates: start: 20231207, end: 20240119
  10. CAPLACIZUMAB [Suspect]
     Active Substance: CAPLACIZUMAB
     Dosage: 10 MG, QD
     Route: 058
     Dates: start: 20231207, end: 20240119
  11. CAPLACIZUMAB [Suspect]
     Active Substance: CAPLACIZUMAB
     Dosage: 10 MG, QD
     Route: 058
     Dates: start: 20231207, end: 20240119
  12. CAPLACIZUMAB [Suspect]
     Active Substance: CAPLACIZUMAB
     Dosage: 10 MG, QD
     Route: 058
     Dates: start: 20231207, end: 20240119
  13. SILVER [Concomitant]
     Active Substance: SILVER
     Indication: Product used for unknown indication
     Route: 065
  14. SOLU-MEDROL [Concomitant]
     Active Substance: METHYLPREDNISOLONE SODIUM SUCCINATE
     Indication: Thrombotic thrombocytopenic purpura
     Dosage: 500 MG/D FOR 3 DAYS
     Route: 065
     Dates: start: 20231205, end: 20231207
  15. SOLU-MEDROL [Concomitant]
     Active Substance: METHYLPREDNISOLONE SODIUM SUCCINATE
     Dosage: 1000 MG/DAY
     Route: 065
     Dates: start: 202401
  16. PREDNISOLONE [Concomitant]
     Active Substance: PREDNISOLONE
     Indication: Product used for unknown indication
     Dosage: 60 MG/DAY
     Route: 065
     Dates: start: 202312, end: 202312
  17. PREDNISOLONE [Concomitant]
     Active Substance: PREDNISOLONE
     Dosage: TAPERING
     Route: 065
     Dates: start: 202312, end: 202312
  18. PREDNISOLONE [Concomitant]
     Active Substance: PREDNISOLONE
     Dosage: 30 MG/DAY
     Route: 065
     Dates: start: 202312, end: 202401
  19. PREDNISOLONE [Concomitant]
     Active Substance: PREDNISOLONE
     Dosage: DOSE REDUCED
     Route: 065
     Dates: start: 202401, end: 202401
  20. PREDNISOLONE [Concomitant]
     Active Substance: PREDNISOLONE
     Dosage: 60 MG/DAY
     Route: 065
     Dates: start: 202401, end: 202402
  21. PREDNISOLONE [Concomitant]
     Active Substance: PREDNISOLONE
     Dosage: TAPERING
     Route: 065
     Dates: start: 202402, end: 202402
  22. PREDNISOLONE [Concomitant]
     Active Substance: PREDNISOLONE
     Dosage: 30 MG/DAY
     Route: 065
     Dates: start: 202402
  23. RITUXIMAB [Concomitant]
     Active Substance: RITUXIMAB
     Indication: Thrombotic thrombocytopenic purpura
     Dosage: 375 MG/M2, QW
     Route: 065
     Dates: start: 20231228, end: 20240118
  24. CYCLOPHOSPHAMIDE [Concomitant]
     Active Substance: CYCLOPHOSPHAMIDE
     Indication: Thrombotic thrombocytopenic purpura
     Dosage: 1000 MG/BODY, 1X
     Route: 042
     Dates: start: 20240129, end: 20240129
  25. PREDONINE [Concomitant]
     Active Substance: PREDNISOLONE
     Indication: Thrombotic thrombocytopenic purpura
     Dosage: 60 MG, QD
     Route: 065
     Dates: start: 20231208
  26. CYCLOPHOSPHAMIDE [Concomitant]
     Active Substance: CYCLOPHOSPHAMIDE
     Indication: Thrombotic thrombocytopenic purpura
     Dosage: 1000 MG, ONLY ONCE DURING THE COURSE
     Route: 065
     Dates: start: 20231229, end: 20231229
  27. DALTEPARIN SODIUM [Concomitant]
     Active Substance: DALTEPARIN SODIUM
     Indication: Thrombotic thrombocytopenic purpura
     Dosage: 2000 U, QD (7 TIMES/WEEK)
     Route: 065
     Dates: start: 20231212, end: 20231227
  28. DALTEPARIN SODIUM [Concomitant]
     Active Substance: DALTEPARIN SODIUM
     Indication: Deep vein thrombosis
  29. FERINJECT [Concomitant]
     Active Substance: FERRIC CARBOXYMALTOSE
     Indication: Thrombotic thrombocytopenic purpura
     Dosage: 500 MG, QW
     Route: 065
     Dates: start: 20240206, end: 20240213
  30. FERINJECT [Concomitant]
     Active Substance: FERRIC CARBOXYMALTOSE
     Indication: Iron deficiency anaemia

REACTIONS (3)
  - Platelet count decreased [Recovered/Resolved]
  - Deep vein thrombosis [Recovering/Resolving]
  - Iron deficiency anaemia [Recovered/Resolved]

NARRATIVE: CASE EVENT DATE: 20231212
